FAERS Safety Report 17398536 (Version 1)
Quarter: 2020Q1

REPORT INFORMATION
  Report Type: Spontaneous
  Country: FI (occurrence: FI)
  Receive Date: 20200210
  Receipt Date: 20200210
  Transmission Date: 20200409
  Serious: Yes (Other)
  Sender: FDA-Public Use
  Company Number: FI-MALLINCKRODT-T202000458

PATIENT
  Age: 82 Year
  Weight: 85 kg

DRUGS (1)
  1. UVADEX [Suspect]
     Active Substance: METHOXSALEN
     Indication: CUTANEOUS T-CELL LYMPHOMA
     Dosage: UNK, EXTRACORPOREAL
     Route: 050
     Dates: start: 201911

REACTIONS (1)
  - Cutaneous T-cell lymphoma refractory [Unknown]
